FAERS Safety Report 20130253 (Version 1)
Quarter: 2021Q4

REPORT INFORMATION
  Report Type: Spontaneous
  Country: CN (occurrence: CN)
  Receive Date: 20211130
  Receipt Date: 20211130
  Transmission Date: 20220304
  Serious: Yes (Other)
  Sender: FDA-Public Use
  Company Number: CN-ELI_LILLY_AND_COMPANY-CN202111009300

PATIENT
  Age: 66 Year
  Sex: Male
  Weight: 59 kg

DRUGS (2)
  1. HUMULIN 70/30 [Suspect]
     Active Substance: INSULIN HUMAN
     Indication: Diabetes mellitus
     Dosage: 38 U, EACH MORNING
     Route: 058
     Dates: start: 2001
  2. HUMULIN 70/30 [Suspect]
     Active Substance: INSULIN HUMAN
     Dosage: 28 U, EACH EVENING
     Route: 058
     Dates: start: 2001

REACTIONS (2)
  - Visual impairment [Unknown]
  - Surgical failure [Unknown]
